FAERS Safety Report 11713905 (Version 13)
Quarter: 2018Q4

REPORT INFORMATION
  Report Type: Spontaneous
  Country: US (occurrence: US)
  Receive Date: 20151109
  Receipt Date: 20181227
  Transmission Date: 20190204
  Serious: Yes (Congenital Anomaly, Other)
  Sender: FDA-Public Use
  Company Number: PHEH2015US022812

PATIENT
  Sex: Male

DRUGS (1)
  1. ZOFRAN [Suspect]
     Active Substance: ONDANSETRON HYDROCHLORIDE
     Indication: FOETAL EXPOSURE DURING PREGNANCY
     Dosage: MOTHERS DOSE: 4 MG, Q4H PRN
     Route: 064

REACTIONS (65)
  - Atrial septal defect [Unknown]
  - Hypoplastic right heart syndrome [Unknown]
  - Left-to-right cardiac shunt [Unknown]
  - Foetal exposure during pregnancy [Unknown]
  - Pulmonary artery dilatation [Unknown]
  - Oropharyngeal pain [Unknown]
  - Pharyngitis [Unknown]
  - Ventricular septal defect [Unknown]
  - Bundle branch block right [Unknown]
  - Pneumonia streptococcal [Unknown]
  - Swelling [Unknown]
  - Transposition of the great vessels [Unknown]
  - Patent ductus arteriosus [Unknown]
  - Cough [Unknown]
  - Head injury [Unknown]
  - Pyrexia [Unknown]
  - Fatigue [Unknown]
  - Dyspnoea [Unknown]
  - Hypoplastic left heart syndrome [Unknown]
  - Mitral valve incompetence [Unknown]
  - Tricuspid valve incompetence [Unknown]
  - Right ventricular dilatation [Unknown]
  - Rhinorrhoea [Unknown]
  - Scar [Unknown]
  - Anhedonia [Unknown]
  - Chest pain [Unknown]
  - Palpitations [Unknown]
  - Acute sinusitis [Unknown]
  - Multiple congenital abnormalities [Unknown]
  - Dysmorphism [Unknown]
  - Pericardial effusion [Unknown]
  - Pleural effusion [Unknown]
  - Pulmonary oedema [Unknown]
  - Soft tissue infection [Unknown]
  - Injury [Unknown]
  - Rhinitis allergic [Unknown]
  - Otitis media acute [Unknown]
  - Urinary tract infection [Unknown]
  - Ear pain [Unknown]
  - Ocular hyperaemia [Unknown]
  - Skull malformation [Unknown]
  - Emotional distress [Unknown]
  - Dermatitis contact [Unknown]
  - Anxiety [Unknown]
  - Gastrooesophageal reflux disease [Unknown]
  - Tachycardia [Unknown]
  - Vomiting [Unknown]
  - Metabolic disorder [Unknown]
  - Dysuria [Unknown]
  - Contusion [Unknown]
  - Heart disease congenital [Unknown]
  - Congenital anomaly [Unknown]
  - Premature baby [Unknown]
  - Pleural thickening [Unknown]
  - Tonsillar hypertrophy [Unknown]
  - Pain [Unknown]
  - Malaise [Unknown]
  - Upper respiratory tract infection [Unknown]
  - Atelectasis [Unknown]
  - Hypermetropia [Unknown]
  - Right atrial dilatation [Unknown]
  - Adenoidal hypertrophy [Unknown]
  - Cardiac murmur [Unknown]
  - Attention deficit/hyperactivity disorder [Unknown]
  - Rash [Unknown]

NARRATIVE: CASE EVENT DATE: 20110310
